FAERS Safety Report 23652605 (Version 1)
Quarter: 2024Q1

REPORT INFORMATION
  Report Type: Spontaneous
  Country: FR (occurrence: FR)
  Receive Date: 20240320
  Receipt Date: 20240320
  Transmission Date: 20240409
  Serious: Yes (Death)
  Sender: FDA-Public Use
  Company Number: None

PATIENT
  Age: 0 Day
  Sex: Male

DRUGS (1)
  1. OCREVUS [Suspect]
     Active Substance: OCRELIZUMAB
     Indication: Product used for unknown indication
     Route: 064
     Dates: start: 20220426, end: 20230519

REACTIONS (4)
  - Foetal exposure during pregnancy [Fatal]
  - Foetal hypokinesia [Fatal]
  - Foetal growth restriction [Fatal]
  - Premature baby [Fatal]

NARRATIVE: CASE EVENT DATE: 20240116
